FAERS Safety Report 17042055 (Version 1)
Quarter: 2019Q4

REPORT INFORMATION
  Report Type: Spontaneous
  Country: GB (occurrence: GB)
  Receive Date: 20191118
  Receipt Date: 20191118
  Transmission Date: 20200122
  Serious: Yes (Other)
  Sender: FDA-Public Use
  Company Number: GB-TEVA-2019-GB-1137724

PATIENT
  Age: 80 Year
  Sex: Male
  Weight: 88.9 kg

DRUGS (4)
  1. CORACTEN [Concomitant]
     Active Substance: NIFEDIPINE
  2. FLUCLOXACILLIN [Suspect]
     Active Substance: FLUCLOXACILLIN
     Indication: ARTHROPOD BITE
     Dosage: 2000 MG
     Route: 048
     Dates: start: 20180520
  3. ATORVASTATIN [Concomitant]
     Active Substance: ATORVASTATIN
     Dosage: 20 MG
  4. CETIRIZINE DIHYDROCHLORIDE [Suspect]
     Active Substance: CETIRIZINE HYDROCHLORIDE
     Indication: ARTHROPOD BITE
     Dosage: FOR 7 DAYS, 10 MG
     Route: 048
     Dates: start: 20180520

REACTIONS (2)
  - Somnolence [Not Recovered/Not Resolved]
  - Dry mouth [Not Recovered/Not Resolved]

NARRATIVE: CASE EVENT DATE: 20180520
